FAERS Safety Report 17201917 (Version 7)
Quarter: 2020Q3

REPORT INFORMATION
  Report Type: Spontaneous
  Country: US (occurrence: US)
  Receive Date: 20191226
  Receipt Date: 20200703
  Transmission Date: 20201102
  Serious: Yes (Other)
  Sender: FDA-Public Use
  Company Number: US-PFIZER INC-2019549415

PATIENT
  Age: 66 Year
  Sex: Male
  Weight: 108.84 kg

DRUGS (1)
  1. LYRICA [Suspect]
     Active Substance: PREGABALIN
     Indication: PROSTATOMEGALY
     Dosage: 150 MG, 2X/DAY
     Dates: start: 2014

REACTIONS (6)
  - Off label use [Unknown]
  - Drug dependence [Not Recovered/Not Resolved]
  - Product use in unapproved indication [Unknown]
  - Insomnia [Not Recovered/Not Resolved]
  - Polyp [Unknown]
  - Pain [Unknown]

NARRATIVE: CASE EVENT DATE: 2014
